FAERS Safety Report 4984115-5 (Version None)
Quarter: 2006Q1

REPORT INFORMATION
  Report Type: 
  Country: None (occurrence: None)
  Receive Date: 20060303
  Receipt Date: 20051130
  Transmission Date: 20060701
  Serious: Yes (Other)
  Sender: FDA-Public Use
  Company Number: HQWYE823002DEC05

PATIENT
  Age: 64 Year
  Sex: Female
  Weight: 65.83 kg

DRUGS (1)
  1. ALAVERT D-12 (LORATADINE/PSEUDOEPHEDRINE SULFATE, TABLET, EXTENDED REL [Suspect]
     Indication: SEASONAL ALLERGY
     Dosage: TABLET X 1, ORAL
     Route: 048
     Dates: start: 20051129, end: 20051129

REACTIONS (1)
  - HEADACHE [None]
